FAERS Safety Report 7630269-1 (Version None)
Quarter: 2011Q3

REPORT INFORMATION
  Report Type: 
  Country: None (occurrence: None)
  Receive Date: 20110722
  Receipt Date: 20110708
  Transmission Date: 20111222
  Serious: Yes (Other)
  Sender: FDA-Public Use
  Company Number: PHHY2011US61530

PATIENT
  Sex: Female

DRUGS (5)
  1. CENESTIN [Concomitant]
     Dosage: 1.25 MG, UNK
  2. GLYBURIDE AND METFORMIN HCL [Concomitant]
     Dosage: 1 DF (5/500 MG), UNK
  3. NORVASC [Suspect]
     Dosage: 10 MG, UNK
  4. METOPROLOL TARTRATE [Concomitant]
     Dosage: 50 MG, AT NIGHT
  5. TEKTURNA [Suspect]
     Dosage: 300 MG, 1XDAY

REACTIONS (1)
  - CEREBROVASCULAR ACCIDENT [None]
